FAERS Safety Report 7105773-5 (Version None)
Quarter: 2010Q4

REPORT INFORMATION
  Report Type: 
  Country: None (occurrence: None)
  Receive Date: 20101110
  Receipt Date: 20101101
  Transmission Date: 20110411
  Serious: Yes (Hospitalization)
  Sender: FDA-Public Use
  Company Number: TIF2010A00107

PATIENT
  Age: 76 Year
  Sex: Female

DRUGS (3)
  1. LANSOPRAZOLE [Suspect]
     Indication: PRODUCT USED FOR UNKNOWN INDICATION
  2. LEVOFLOXACIN [Suspect]
     Indication: PRODUCT USED FOR UNKNOWN INDICATION
  3. OLMESARTAN (OLMESARTAN) [Concomitant]

REACTIONS (11)
  - CAROTID ARTERIOSCLEROSIS [None]
  - CAROTID ARTERY THROMBOSIS [None]
  - CHEST PAIN [None]
  - CLONUS [None]
  - CONFUSIONAL STATE [None]
  - DISORIENTATION [None]
  - GENERALISED ERYTHEMA [None]
  - GRAND MAL CONVULSION [None]
  - HEMIPARESIS [None]
  - PNEUMONIA [None]
  - VOMITING [None]
